APPROVED DRUG PRODUCT: NITROGLYCERIN
Active Ingredient: NITROGLYCERIN
Strength: 0.6MG
Dosage Form/Route: TABLET;SUBLINGUAL
Application: A211604 | Product #003 | TE Code: AB
Applicant: NATCO PHARMA LTD
Approved: Apr 30, 2019 | RLD: No | RS: No | Type: RX